FAERS Safety Report 6792963-4 (Version None)
Quarter: 2010Q2

REPORT INFORMATION
  Report Type: 
  Country: None (occurrence: None)
  Receive Date: 20100624
  Receipt Date: 20090130
  Transmission Date: 20101027
  Serious: No
  Sender: FDA-Public Use
  Company Number: US-PFIZER INC-2008084041

PATIENT
  Sex: Male
  Weight: 99.79 kg

DRUGS (2)
  1. XALATAN [Suspect]
     Indication: OPEN ANGLE GLAUCOMA
     Dosage: UNK
     Route: 047
     Dates: start: 20041029
  2. XALATAN [Suspect]
     Dates: start: 20041029

REACTIONS (1)
  - DRY MOUTH [None]
